FAERS Safety Report 4589691-2 (Version None)
Quarter: 2005Q1

REPORT INFORMATION
  Report Type: 
  Country: None (occurrence: None)
  Receive Date: 20050217
  Receipt Date: 20050204
  Transmission Date: 20050727
  Serious: Yes (Hospitalization)
  Sender: FDA-Public Use
  Company Number: 2005AP00852

PATIENT
  Age: 75 Year
  Sex: Female

DRUGS (3)
  1. ATACAND [Suspect]
     Dosage: 8 MG DAILY PO
     Route: 048
  2. PARACETAMOL [Concomitant]
  3. CETIRIZINE HCL [Concomitant]

REACTIONS (1)
  - PEMPHIGOID [None]
